FAERS Safety Report 10524517 (Version 1)
Quarter: 2014Q4

REPORT INFORMATION
  Report Type: Report from Study
  Country: US (occurrence: US)
  Receive Date: 20141017
  Receipt Date: 20141017
  Transmission Date: 20150528
  Serious: Yes (Death, Other)
  Sender: FDA-Public Use
  Company Number: US-CELGENE-USA-2014102867

PATIENT

DRUGS (8)
  1. TEMOZOLOMIDE. [Suspect]
     Active Substance: TEMOZOLOMIDE
     Indication: GLIOBLASTOMA
     Route: 065
  2. TEMOZOLOMIDE. [Suspect]
     Active Substance: TEMOZOLOMIDE
     Route: 065
  3. WARFARIN [Concomitant]
     Active Substance: WARFARIN
     Indication: PRODUCT USED FOR UNKNOWN INDICATION
     Route: 065
  4. THALOMID [Suspect]
     Active Substance: THALIDOMIDE
     Route: 048
  5. THALOMID [Suspect]
     Active Substance: THALIDOMIDE
     Route: 048
  6. ISOTRETINOIN [Suspect]
     Active Substance: ISOTRETINOIN
     Indication: GLIOBLASTOMA
     Route: 048
  7. CELECOXIB. [Suspect]
     Active Substance: CELECOXIB
     Indication: GLIOBLASTOMA
     Route: 048
  8. THALOMID [Suspect]
     Active Substance: THALIDOMIDE
     Indication: GLIOBLASTOMA
     Route: 048

REACTIONS (35)
  - Muscular weakness [Unknown]
  - Hypertriglyceridaemia [Unknown]
  - Erythema multiforme [Unknown]
  - Syncope [Unknown]
  - Haemoglobin decreased [Unknown]
  - Headache [Unknown]
  - Gastrointestinal disorder [Unknown]
  - Sinus bradycardia [Unknown]
  - Embolism [Unknown]
  - Blood cholesterol increased [Unknown]
  - Pulmonary embolism [Fatal]
  - White blood cell count decreased [Unknown]
  - Neutrophil count decreased [Unknown]
  - Rash [Unknown]
  - Pyrexia [Unknown]
  - Constipation [Unknown]
  - Pain in extremity [Unknown]
  - Nervous system disorder [Unknown]
  - Lymphopenia [Unknown]
  - Blood disorder [Unknown]
  - Alanine aminotransferase increased [Unknown]
  - Dyspnoea [Unknown]
  - Ataxia [Unknown]
  - Aspartate aminotransferase increased [Unknown]
  - Infection [Unknown]
  - Fatigue [Unknown]
  - Platelet count decreased [Unknown]
  - Laboratory test abnormal [Unknown]
  - Pneumonitis [Unknown]
  - Opportunistic infection [Unknown]
  - Dizziness [Unknown]
  - Granulocyte count decreased [Unknown]
  - Lung disorder [Unknown]
  - Weight decreased [Unknown]
  - Dry skin [Unknown]
